FAERS Safety Report 7378364-9 (Version None)
Quarter: 2011Q1

REPORT INFORMATION
  Report Type: 
  Country: None (occurrence: None)
  Receive Date: 20110328
  Receipt Date: 20110315
  Transmission Date: 20110831
  Serious: Yes (Hospitalization)
  Sender: FDA-Public Use
  Company Number: JP-ELI_LILLY_AND_COMPANY-JP201103005555

PATIENT
  Age: 87 Year
  Sex: Female

DRUGS (3)
  1. FORTEO [Suspect]
     Indication: OSTEOPOROSIS
     Route: 058
     Dates: start: 20101210
  2. SOLON [Concomitant]
     Indication: PROPHYLAXIS
     Dosage: 2 D/F, 2/D
     Route: 048
  3. SOLETON [Concomitant]
     Indication: RHEUMATOID ARTHRITIS
     Dosage: 2 D/F, 2/D
     Route: 048

REACTIONS (1)
  - SPINAL COMPRESSION FRACTURE [None]
